FAERS Safety Report 19901236 (Version 2)
Quarter: 2022Q1

REPORT INFORMATION
  Report Type: Spontaneous
  Country: US (occurrence: US)
  Receive Date: 20210930
  Receipt Date: 20220121
  Transmission Date: 20220423
  Serious: No
  Sender: FDA-Public Use
  Company Number: US-PFIZER INC-2016216594

PATIENT
  Age: 75 Year
  Sex: Female
  Weight: 101 kg

DRUGS (31)
  1. CADUET [Suspect]
     Active Substance: AMLODIPINE BESYLATE\ATORVASTATIN CALCIUM
     Dosage: UNK, 2X/DAY (2 TIMES DAILY AT 8 AM + 8 PM)
     Route: 048
     Dates: start: 20190328
  2. CADUET [Suspect]
     Active Substance: AMLODIPINE BESYLATE\ATORVASTATIN CALCIUM
     Dosage: 1 DF (5-10 MG), DAILY
     Route: 048
  3. CADUET [Suspect]
     Active Substance: AMLODIPINE BESYLATE\ATORVASTATIN CALCIUM
     Dosage: 1 DF (5 - 40 MG TABLET), TWICE DAILY (AT 8 AM + 8 PM)
     Route: 048
     Dates: start: 20200402, end: 202004
  4. CADUET [Suspect]
     Active Substance: AMLODIPINE BESYLATE\ATORVASTATIN CALCIUM
     Dosage: UNK(5-40 MG TABLET)
     Dates: start: 202004, end: 202004
  5. CADUET [Suspect]
     Active Substance: AMLODIPINE BESYLATE\ATORVASTATIN CALCIUM
     Dosage: 1 DF, 2X/DAY [SIG: TAKE 1 TABLET BY MOUTH 2 TIMES DAILY AT 8 AM AND 8PM]
     Route: 048
     Dates: start: 202004
  6. CADUET [Suspect]
     Active Substance: AMLODIPINE BESYLATE\ATORVASTATIN CALCIUM
     Dosage: 1 DF, 2X/DAY [SIG: TAKE 1 TABLET BY MOUTH 2 TIMES DAILY AT 8 AM AND 8PM]
     Route: 048
     Dates: start: 20210503
  7. TYLENOL [Concomitant]
     Active Substance: ACETAMINOPHEN
     Dosage: 650 MG, UNK
  8. TYLENOL [Concomitant]
     Active Substance: ACETAMINOPHEN
     Dosage: 300 MG, 2X/DAY
     Route: 048
  9. ASPIRIN [Concomitant]
     Active Substance: ASPIRIN
     Dosage: 81 MG, DAILY
     Route: 048
  10. TENORMIN [Concomitant]
     Active Substance: ATENOLOL
     Dosage: 25 MG, 2X/DAY
     Route: 048
  11. CLOBETASOL PROPIONATE [Concomitant]
     Active Substance: CLOBETASOL PROPIONATE
     Dosage: UNK, AS NEEDED (TWICE A DAY AS NEEDED)
     Route: 061
  12. VITAMIN B12 [Concomitant]
     Active Substance: CYANOCOBALAMIN
     Dosage: 1 ML, UNK (EVERY 14 DAYS) (STRENGTH: 1000 UG/ML)
  13. VOLTAREN [Concomitant]
     Active Substance: DICLOFENAC SODIUM
     Dosage: 4 G, 4X/DAY
     Route: 061
  14. BENTYL [Concomitant]
     Active Substance: DICYCLOMINE HYDROCHLORIDE
     Indication: Muscle spasms
     Dosage: 10 MG, 3X/DAY
     Route: 048
  15. NEXIUM [Concomitant]
     Active Substance: ESOMEPRAZOLE MAGNESIUM
     Dosage: 40 MG, 2X/DAY (30DAYS)
     Route: 048
  16. PREMARIN [Concomitant]
     Active Substance: ESTROGENS, CONJUGATED
     Dosage: 1 G, UNK (3 TIMES WEEKLY AT NIGHT)
     Route: 067
  17. WESTCORT [Concomitant]
     Active Substance: HYDROCORTISONE VALERATE
     Dosage: UNK, 2X/DAY
     Route: 061
  18. LEVSIN/SL [Concomitant]
     Indication: Muscle spasms
     Dosage: 0.125 MG, AS NEEDED (EVERY 6 HOURS AS NEEDED)
     Route: 048
  19. HUMULIN NOS [Concomitant]
     Active Substance: INSULIN HUMAN
     Dosage: 70 IU, 1X/DAY (INJECT 70 UNITS EVERY AM ) STRENGTH 100IU/ML
  20. HUMULIN NOS [Concomitant]
     Active Substance: INSULIN HUMAN
     Dosage: 80 IU, 1X/DAY (80 UNITS EVERY PM BEFORE DINNER) (STRENGTH 100IU/ML)
  21. NOVOLIN NOS [Concomitant]
     Active Substance: INSULIN HUMAN
     Dosage: 70 IU, 1X/DAY (70 UNITS EVERY AM) STRENGTH:100IU/ML )
  22. NOVOLIN NOS [Concomitant]
     Active Substance: INSULIN HUMAN
     Dosage: 80 IU, 1X/DAY (80 UNITS EVERY PM)
  23. HUMULIN R [Concomitant]
     Active Substance: INSULIN HUMAN
     Dosage: UNK, AS NEEDED (INJECT 0-5 UNITS PRN ) (STRENGTH:100IU/ML)
  24. NOVOLIN R [Concomitant]
     Active Substance: INSULIN HUMAN
     Dosage: UNK, AS NEEDED (INJECT 0-5 UNITS PRN GLUCOSE (STRENGTH:100IU/ML )
  25. NIZORAL [Concomitant]
     Active Substance: KETOCONAZOLE
     Dosage: UNK (TOPICALLY TO AFFECTED AREAS 1-2 TIMES DAILY)
     Route: 061
  26. XYLOCAINE [Concomitant]
     Active Substance: LIDOCAINE HYDROCHLORIDE
     Indication: Pain
     Dosage: UNK, AS NEEDED (APPLY TOPICALLY TO AFFECT AREA THRICE DAILY)
     Route: 061
  27. NYSTATIN [Concomitant]
     Active Substance: NYSTATIN
     Dosage: UNK, 2X/DAY (APPLY SMALL AMOUNT TO RED AREA UNDER BREAST)
  28. PROTONIX [Concomitant]
     Active Substance: PANTOPRAZOLE SODIUM
     Dosage: 40 MG, DAILY  (RX OUTREACH)
     Route: 048
  29. MIRALAX [Concomitant]
     Active Substance: POLYETHYLENE GLYCOL 3350
     Dosage: UNK, AS NEEDED
     Route: 048
  30. JANUVIA [Concomitant]
     Active Substance: SITAGLIPTIN PHOSPHATE
     Dosage: 25 MG, DAILY
     Route: 048
  31. ALDACTONE [Concomitant]
     Active Substance: SPIRONOLACTONE
     Dosage: 25 MG, DAILY
     Route: 048

REACTIONS (2)
  - Off label use [Unknown]
  - Allergic oedema [Unknown]
